FAERS Safety Report 5564939-6 (Version None)
Quarter: 2007Q4

REPORT INFORMATION
  Report Type: 
  Country: None (occurrence: None)
  Receive Date: 20071218
  Receipt Date: 20071214
  Transmission Date: 20080405
  Serious: Yes (Other)
  Sender: FDA-Public Use
  Company Number: B0430159A

PATIENT
  Age: 2 Day
  Sex: Female

DRUGS (10)
  1. PAXIL [Suspect]
     Indication: DRUG USE FOR UNKNOWN INDICATION
  2. PL [Concomitant]
     Indication: NASOPHARYNGITIS
     Dates: start: 20051220, end: 20051222
  3. PL [Concomitant]
     Dates: start: 20060104, end: 20060106
  4. PL [Concomitant]
     Dates: start: 20060510, end: 20060514
  5. MEDICON [Concomitant]
     Indication: UPPER RESPIRATORY TRACT INFLAMMATION
     Dosage: 60MG PER DAY
     Dates: start: 20060104
  6. MEDICON [Concomitant]
     Dosage: 60MG PER DAY
     Dates: start: 20060507, end: 20060515
  7. DACTIL OB [Concomitant]
     Dosage: 150MG PER DAY
     Dates: start: 20060124, end: 20060128
  8. LAXOBERON [Concomitant]
     Indication: CONSTIPATION
     Dates: start: 20060430
  9. BRICANYL [Concomitant]
     Indication: ASTHMA
     Dosage: 8MG PER DAY
     Dates: start: 20060507, end: 20060515
  10. BANAN [Concomitant]
     Indication: UPPER RESPIRATORY TRACT INFLAMMATION
     Dosage: 200MG PER DAY
     Dates: start: 20060510, end: 20060514

REACTIONS (5)
  - DRUG EXPOSURE DURING PREGNANCY [None]
  - DRUG WITHDRAWAL SYNDROME [None]
  - HYPERTONIA [None]
  - IRRITABILITY [None]
  - TONIC CONVULSION [None]
